FAERS Safety Report 9892414 (Version 2)
Quarter: 2014Q1

REPORT INFORMATION
  Report Type: Report from Study
  Country: NZ (occurrence: NZ)
  Receive Date: 20140212
  Receipt Date: 20140212
  Transmission Date: 20141002
  Serious: Yes (Disabling)
  Sender: FDA-Public Use
  Company Number: PHHY2014NZ003558

PATIENT
  Sex: Male

DRUGS (4)
  1. CLOZARIL [Suspect]
     Indication: SCHIZOPHRENIA
     Dosage: UNK UKN, UNK
     Dates: start: 20090514
  2. CLOZARIL [Suspect]
     Indication: SCHIZOAFFECTIVE DISORDER
     Dosage: 325 MG, NOCTE
     Route: 048
     Dates: start: 2010
  3. ZIPRASIDONE [Concomitant]
     Indication: CONVULSION
     Dosage: 120 MG, (40 MG MANE AND 80 MG NOCTE)
     Route: 048
     Dates: start: 2011
  4. EPILIM [Concomitant]
     Indication: CONVULSION
     Dosage: 1500 MG, (500 MG MANE AND 1000 MG NOCTE)
     Route: 048

REACTIONS (3)
  - Depressed mood [Unknown]
  - Sleep disorder [Unknown]
  - Salivary hypersecretion [Unknown]
